FAERS Safety Report 16710549 (Version 1)
Quarter: 2019Q4

REPORT INFORMATION
  Report Type: Spontaneous
  Country: US (occurrence: US)
  Receive Date: 20190815
  Receipt Date: 20190815
  Transmission Date: 20200122
  Serious: No
  Sender: FDA-Public Use
  Company Number: None

PATIENT
  Age: 79 Year
  Sex: Female
  Weight: 60.75 kg

DRUGS (3)
  1. DOXYCYCLINE MONO 100 MG. MG CAP [Suspect]
     Active Substance: DOXYCYCLINE
     Indication: INFECTION
     Dosage: ?          QUANTITY:28 CAPSULE(S);?
     Route: 048
     Dates: start: 20190814, end: 20190814
  2. ATENOLOL. [Concomitant]
     Active Substance: ATENOLOL
  3. ANACIN NOS [Concomitant]
     Active Substance: ACETAMINOPHEN OR ACETAMINOPHEN\ASPIRIN\CAFFEINE OR ASPIRIN\CAFFEINE

REACTIONS (6)
  - Decreased appetite [None]
  - Vision blurred [None]
  - Dizziness [None]
  - Headache [None]
  - Nausea [None]
  - Blood pressure increased [None]

NARRATIVE: CASE EVENT DATE: 20190815
